FAERS Safety Report 8171502-X (Version None)
Quarter: 2012Q1

REPORT INFORMATION
  Report Type: 
  Country: None (occurrence: None)
  Receive Date: 20120104
  Receipt Date: 20111202
  Transmission Date: 20120608
  Serious: No
  Sender: FDA-Public Use
  Company Number: 2011HGS-002901

PATIENT
  Age: 56 Year
  Sex: Female
  Weight: 79.3795 kg

DRUGS (16)
  1. ZONISAMIDE [Concomitant]
  2. RANITIDINE [Concomitant]
  3. GABAPENTIN [Concomitant]
  4. TEMAZEPAM [Concomitant]
  5. RESTASIS (CICLOSPORIN) (CICLOSPORIN) [Concomitant]
  6. LEVOTHYROXINE SODIUM [Concomitant]
  7. FLUTICASONE (FLUTICASONE) (FLUTICASONE) [Concomitant]
  8. FOLIC ACID [Concomitant]
  9. BENLYSTA [Suspect]
     Indication: SYSTEMIC LUPUS ERYTHEMATOSUS
     Dosage: 1 IN 28 D, INTRAVENOUS DRIP
     Route: 041
     Dates: start: 20110901
  10. METHOTREXATE [Concomitant]
  11. ALPRAZOLAM [Concomitant]
  12. PLAQUENIL (HYDROXYCHLOROQUINE SULFATE)(HYDROXYCHLOROQUINE SULFATE) [Concomitant]
  13. EVOXAC [Concomitant]
  14. QVAR (BECLOMETASONE DIPROPIONATE) (BECLOMETASONE DIPROPIONATE) [Concomitant]
  15. METOPROLOL SUCCINATE [Concomitant]
  16. ISOSORBIDE MONONITRATE [Concomitant]

REACTIONS (1)
  - MYALGIA [None]
